FAERS Safety Report 11431658 (Version 8)
Quarter: 2016Q1

REPORT INFORMATION
  Report Type: Spontaneous
  Country: US (occurrence: US)
  Receive Date: 20150828
  Receipt Date: 20160118
  Transmission Date: 20160525
  Serious: Yes (Other)
  Sender: FDA-Public Use
  Company Number: US-PFIZER INC-2015274630

PATIENT
  Age: 63 Year
  Sex: Female
  Weight: 50 kg

DRUGS (12)
  1. SUTENT [Suspect]
     Active Substance: SUNITINIB MALATE
     Dosage: 37.5 MG, CYCLIC (28 DAY)
     Dates: start: 20151010, end: 20151122
  2. NEXAVAR [Concomitant]
     Active Substance: SORAFENIB
     Dosage: UNK
  3. SUTENT [Suspect]
     Active Substance: SUNITINIB MALATE
     Dosage: 25 MG, CYCLIC (28 DAY)
     Dates: start: 20150922, end: 20151023
  4. PROZAC [Concomitant]
     Active Substance: FLUOXETINE HYDROCHLORIDE
     Dosage: UNK
  5. SUTENT [Suspect]
     Active Substance: SUNITINIB MALATE
     Dosage: 37.5 MG, CYCLIC (28 DAY)
     Dates: start: 20151104, end: 20151122
  6. SUTENT [Suspect]
     Active Substance: SUNITINIB MALATE
     Indication: METASTATIC RENAL CELL CARCINOMA
     Dosage: UNK
     Dates: start: 2013
  7. SUTENT [Suspect]
     Active Substance: SUNITINIB MALATE
     Dosage: 37.5 MG, CYCLIC (28 DAYS ON/14 DAYS OFF)
     Dates: start: 20150814, end: 20151130
  8. AMLODIPINE [Concomitant]
     Active Substance: AMLODIPINE BESYLATE
     Dosage: UNK
  9. SUTENT [Suspect]
     Active Substance: SUNITINIB MALATE
     Dosage: UNK, CYCLIC (25.0/ DAY X 28 DAY)
     Dates: start: 20150819, end: 20150915
  10. AFINITOR [Concomitant]
     Active Substance: EVEROLIMUS
     Dosage: UNK
  11. HYDRALAZINE [Concomitant]
     Active Substance: HYDRALAZINE HYDROCHLORIDE
     Dosage: UNK, AS NEEDED
  12. TRAMADOL. [Concomitant]
     Active Substance: TRAMADOL
     Dosage: UNK

REACTIONS (35)
  - Osteonecrosis of jaw [Not Recovered/Not Resolved]
  - Disease progression [Not Recovered/Not Resolved]
  - Metastatic renal cell carcinoma [Not Recovered/Not Resolved]
  - Cough [Unknown]
  - Skin hypertrophy [Recovered/Resolved]
  - Fatigue [Not Recovered/Not Resolved]
  - Dry skin [Recovered/Resolved]
  - Alopecia [Recovered/Resolved]
  - Decreased appetite [Not Recovered/Not Resolved]
  - Erythema [Recovered/Resolved]
  - Stomatitis [Unknown]
  - Glossitis [Unknown]
  - Pain in jaw [Not Recovered/Not Resolved]
  - Tenderness [Unknown]
  - Weight decreased [Not Recovered/Not Resolved]
  - Oral pain [Unknown]
  - Dysgeusia [Not Recovered/Not Resolved]
  - Jaw disorder [Not Recovered/Not Resolved]
  - Epistaxis [Recovered/Resolved]
  - Constipation [Recovered/Resolved]
  - Oral disorder [Unknown]
  - Palmar-plantar erythrodysaesthesia syndrome [Unknown]
  - Dyspnoea [Not Recovered/Not Resolved]
  - Haemorrhage [Recovered/Resolved]
  - Gingival disorder [Recovered/Resolved]
  - Pain in extremity [Recovered/Resolved]
  - Glossodynia [Unknown]
  - Paraesthesia [Not Recovered/Not Resolved]
  - Blister [Recovered/Resolved]
  - Gingival pain [Unknown]
  - Rectal haemorrhage [Recovered/Resolved]
  - Diarrhoea [Recovered/Resolved]
  - Hypertension [Recovered/Resolved]
  - Headache [Recovered/Resolved]
  - Hypoaesthesia [Not Recovered/Not Resolved]

NARRATIVE: CASE EVENT DATE: 20140814
